FAERS Safety Report 6397963-4 (Version None)
Quarter: 2009Q4

REPORT INFORMATION
  Report Type: 
  Country: None (occurrence: None)
  Receive Date: 20091013
  Receipt Date: 20091007
  Transmission Date: 20100525
  Serious: Yes (Other)
  Sender: FDA-Public Use
  Company Number: US-JNJFOC-20091003449

PATIENT
  Age: 55 Year
  Sex: Female

DRUGS (2)
  1. ARESTIN [Suspect]
     Route: 065
     Dates: start: 20090301, end: 20090601
  2. ARESTIN [Suspect]
     Indication: DRUG USE FOR UNKNOWN INDICATION
     Route: 065
     Dates: start: 20090301, end: 20090601

REACTIONS (1)
  - THYROID DISORDER [None]
